FAERS Safety Report 21605453 (Version 1)
Quarter: 2022Q4

REPORT INFORMATION
  Report Type: Spontaneous
  Country: US (occurrence: US)
  Receive Date: 20221116
  Receipt Date: 20221116
  Transmission Date: 20230113
  Serious: Yes (Other)
  Sender: FDA-Public Use
  Company Number: US-IDORSIA-002045-2022-US

PATIENT
  Sex: Female

DRUGS (1)
  1. QUVIVIQ [Suspect]
     Active Substance: DARIDOREXANT
     Indication: Insomnia
     Dosage: 50 MG
     Route: 065

REACTIONS (7)
  - Suicidal ideation [Unknown]
  - Abnormal dreams [Unknown]
  - Sleep terror [Unknown]
  - Constipation [Unknown]
  - Headache [Unknown]
  - Anxiety [Unknown]
  - Somnolence [Unknown]
